FAERS Safety Report 12387993 (Version 1)
Quarter: 2016Q2

REPORT INFORMATION
  Report Type: Spontaneous
  Country: US (occurrence: US)
  Receive Date: 20160520
  Receipt Date: 20160520
  Transmission Date: 20160815
  Serious: Yes (Other)
  Sender: FDA-Public Use
  Company Number: US-ASTRAZENECA-2013SE24270

PATIENT
  Age: 58 Year
  Sex: Female
  Weight: 102 kg

DRUGS (13)
  1. DIOVAN HCT [Concomitant]
     Active Substance: HYDROCHLOROTHIAZIDE\VALSARTAN
     Dosage: 1DF= 80/12.5MG
     Route: 048
  2. LEVEMIR [Concomitant]
     Active Substance: INSULIN DETEMIR
     Indication: DIABETES MELLITUS
     Dosage: 60 UNITS, 1 INJECTION AT NIGHT
     Route: 058
  3. GLIMEPIRIDE. [Suspect]
     Active Substance: GLIMEPIRIDE
     Indication: DIABETES MELLITUS
     Route: 048
     Dates: start: 20130328
  4. ASPIRIN. [Concomitant]
     Active Substance: ASPIRIN
  5. BYDUREON [Suspect]
     Active Substance: EXENATIDE
     Indication: TYPE 2 DIABETES MELLITUS
     Route: 058
     Dates: start: 2013
  6. BYDUREON [Suspect]
     Active Substance: EXENATIDE
     Indication: TYPE 2 DIABETES MELLITUS
     Route: 058
     Dates: start: 20130310, end: 20130324
  7. GLIMEPIRIDE. [Suspect]
     Active Substance: GLIMEPIRIDE
     Indication: DIABETES MELLITUS
     Route: 048
  8. METFORMIN HYDROCHLORIDE. [Suspect]
     Active Substance: METFORMIN HYDROCHLORIDE
     Indication: DIABETES MELLITUS
     Route: 048
     Dates: end: 20130327
  9. GLIMEPIRIDE. [Suspect]
     Active Substance: GLIMEPIRIDE
     Indication: DIABETES MELLITUS
     Route: 048
     Dates: end: 20130327
  10. VALSARTAN. [Concomitant]
     Active Substance: VALSARTAN
     Indication: BLOOD PRESSURE ABNORMAL
     Dosage: 12.5/80 MG DAILY
  11. METFORMIN HYDROCHLORIDE. [Suspect]
     Active Substance: METFORMIN HYDROCHLORIDE
     Indication: DIABETES MELLITUS
     Route: 048
     Dates: start: 20130328
  12. VITAMIN D [Concomitant]
     Active Substance: CHOLECALCIFEROL
  13. OMEPRAZOLE. [Concomitant]
     Active Substance: OMEPRAZOLE
     Dosage: UNK UNK, PRN

REACTIONS (14)
  - Eructation [Not Recovered/Not Resolved]
  - Abdominal discomfort [Recovering/Resolving]
  - Decreased appetite [Unknown]
  - Dizziness [Recovering/Resolving]
  - Weight decreased [Unknown]
  - Blood urine present [Recovered/Resolved]
  - Sick building syndrome [Unknown]
  - Cystitis [Recovered/Resolved]
  - Nausea [Unknown]
  - Headache [Unknown]
  - Blood glucose fluctuation [Unknown]
  - Blood glucose abnormal [Unknown]
  - Parosmia [Recovering/Resolving]
  - Vomiting [Unknown]

NARRATIVE: CASE EVENT DATE: 2013
